FAERS Safety Report 17422301 (Version 1)
Quarter: 2020Q1

REPORT INFORMATION
  Report Type: Report from Study
  Country: US (occurrence: US)
  Receive Date: 20200214
  Receipt Date: 20200214
  Transmission Date: 20200409
  Serious: Yes (Other)
  Sender: FDA-Public Use
  Company Number: NVSC2020US037738

PATIENT
  Sex: Female

DRUGS (1)
  1. PROMACTA [Suspect]
     Active Substance: ELTROMBOPAG OLAMINE
     Indication: IMMUNE THROMBOCYTOPENIC PURPURA
     Dosage: 50 MG, QD
     Route: 048
     Dates: start: 20200211

REACTIONS (4)
  - Labelled drug-food interaction medication error [Unknown]
  - Cataract [Not Recovered/Not Resolved]
  - Platelet count increased [Recovered/Resolved]
  - Oral pain [Recovering/Resolving]
